FAERS Safety Report 8477380-3 (Version None)
Quarter: 2012Q2

REPORT INFORMATION
  Report Type: 
  Country: None (occurrence: None)
  Receive Date: 20120618
  Receipt Date: 20120611
  Transmission Date: 20120825
  Serious: Yes (Other)
  Sender: FDA-Public Use
  Company Number: DSA_57070_2012

PATIENT
  Sex: Female
  Weight: 56.246 kg

DRUGS (10)
  1. GLYBURIDE [Concomitant]
  2. MULTI-VITAMINS [Concomitant]
  3. B12-VITAMIN [Concomitant]
  4. CYMBALTA [Concomitant]
  5. SIMVASTATIN [Concomitant]
  6. OMEPRAZOLE [Concomitant]
  7. XENAZINE [Suspect]
     Indication: TARDIVE DYSKINESIA
     Dosage: 12.5 MG, BID, ORAL
     Route: 048
     Dates: start: 20120511
  8. DIGOXIN [Concomitant]
  9. XANAX [Concomitant]
  10. HYDROCODONE BITARTRATE + ACETAMINOPHEN [Concomitant]

REACTIONS (7)
  - ASTHENIA [None]
  - FEELING ABNORMAL [None]
  - DIZZINESS [None]
  - DRUG INEFFECTIVE [None]
  - CONFUSIONAL STATE [None]
  - DEPRESSION [None]
  - SUICIDAL IDEATION [None]
